FAERS Safety Report 5684711-6 (Version None)
Quarter: 2008Q1

REPORT INFORMATION
  Report Type: 
  Country: None (occurrence: None)
  Receive Date: 20080328
  Receipt Date: 19800922
  Transmission Date: 20080703
  Serious: Yes (Death, Hospitalization, Other)
  Sender: FDA-Public Use
  Company Number: GB-ROCHE-1667

PATIENT
  Age: 31 Year
  Sex: Male

DRUGS (2)
  1. NAPROSYN [Suspect]
     Indication: ANKYLOSING SPONDYLITIS
     Route: 048
  2. DISTALGESIC [Concomitant]

REACTIONS (6)
  - ANKYLOSING SPONDYLITIS [None]
  - CARDIAC VALVE DISEASE [None]
  - COLLAPSE OF LUNG [None]
  - DEPRESSED LEVEL OF CONSCIOUSNESS [None]
  - DEPRESSION [None]
  - PULMONARY CONGESTION [None]
